FAERS Safety Report 8289318-2 (Version None)
Quarter: 2012Q2

REPORT INFORMATION
  Report Type: 
  Country: None (occurrence: None)
  Receive Date: 20120417
  Receipt Date: 20120413
  Transmission Date: 20120825
  Serious: Yes (Death, Other)
  Sender: FDA-Public Use
  Company Number: PHHY2012JP031529

PATIENT
  Age: 49 Year
  Sex: Male

DRUGS (4)
  1. METHYLPREDNISOLONE [Suspect]
     Dosage: 2 MG/KG/DAY
  2. FLUCONAZOLE [Suspect]
     Indication: ANTIFUNGAL PROPHYLAXIS
     Dosage: 200 MG, PER DAY
  3. METHYLPREDNISOLONE [Suspect]
     Indication: GRAFT VERSUS HOST DISEASE
     Dosage: 1000 MG, DAILY FOR 3 DAYS
  4. MICAFUNGIN [Suspect]
     Indication: ANTIFUNGAL PROPHYLAXIS
     Dosage: 150 MG PER DAY

REACTIONS (3)
  - FUNGAEMIA [None]
  - ASPERGILLOSIS [None]
  - PYREXIA [None]
